FAERS Safety Report 15597228 (Version 3)
Quarter: 2020Q3

REPORT INFORMATION
  Report Type: Report from Study
  Country: BR (occurrence: BR)
  Receive Date: 20181108
  Receipt Date: 20200618
  Transmission Date: 20201104
  Serious: Yes (Death, Other)
  Sender: FDA-Public Use
  Company Number: PHHY2016BR174597

PATIENT
  Age: 56 Year
  Sex: Male
  Weight: 69 kg

DRUGS (6)
  1. XOLAIR [Suspect]
     Active Substance: OMALIZUMAB
     Dosage: 225 MG, QMO
     Route: 058
     Dates: start: 2009
  2. XOLAIR [Suspect]
     Active Substance: OMALIZUMAB
     Indication: ASTHMA
     Dosage: 225 MG, EVERY 15 DAYS
     Route: 058
     Dates: start: 200804
  3. BRICANYL [Concomitant]
     Active Substance: TERBUTALINE SULFATE
     Indication: PRODUCT USED FOR UNKNOWN INDICATION
     Route: 055
  4. FORASEQ [Suspect]
     Active Substance: BUDESONIDE\FORMOTEROL FUMARATE
     Indication: PRODUCT USED FOR UNKNOWN INDICATION
     Dosage: Q6H
     Route: 065
     Dates: start: 2009
  5. XOLAIR [Suspect]
     Active Substance: OMALIZUMAB
     Dosage: 225 MG, EVERY 15 DAYS
     Route: 058
     Dates: start: 201808
  6. XOLAIR [Suspect]
     Active Substance: OMALIZUMAB
     Dosage: UNK
     Route: 058
     Dates: start: 20180815

REACTIONS (5)
  - Thrombosis [Unknown]
  - Asthma [Unknown]
  - Asthmatic crisis [Recovered/Resolved]
  - Sensitivity to weather change [Unknown]
  - Death [Fatal]

NARRATIVE: CASE EVENT DATE: 20200219
